FAERS Safety Report 17158907 (Version 1)
Quarter: 2019Q4

REPORT INFORMATION
  Report Type: Spontaneous
  Country: SE (occurrence: SE)
  Receive Date: 20191216
  Receipt Date: 20191216
  Transmission Date: 20200122
  Serious: Yes (Hospitalization, Other)
  Sender: FDA-Public Use
  Company Number: SE-PFIZER INC-2019534223

PATIENT
  Sex: Female

DRUGS (2)
  1. XANOR [Suspect]
     Active Substance: ALPRAZOLAM
     Dosage: UNK (7 TABLETS, UNKNOWN STRENGTH)
     Route: 048
     Dates: start: 20181228, end: 20181228
  2. PROPAVAN [Suspect]
     Active Substance: PROPIOMAZINE
     Dosage: 1.7 G, UNK
     Route: 048
     Dates: start: 20181228, end: 20181228

REACTIONS (5)
  - Depressed level of consciousness [Unknown]
  - Intentional self-injury [Unknown]
  - Tachycardia [Unknown]
  - Intentional overdose [Unknown]
  - Lethargy [Unknown]

NARRATIVE: CASE EVENT DATE: 20181228
